FAERS Safety Report 8606190-9 (Version None)
Quarter: 2012Q3

REPORT INFORMATION
  Report Type: 
  Country: None (occurrence: None)
  Receive Date: 20120820
  Receipt Date: 20120112
  Transmission Date: 20120928
  Serious: Yes (Other)
  Sender: FDA-Public Use
  Company Number: US-ROCHE-1101413

PATIENT
  Age: 38 Year
  Sex: Male

DRUGS (3)
  1. LIDOCAINE [Concomitant]
  2. ACTIVASE [Suspect]
     Indication: ACUTE MYOCARDIAL INFARCTION
  3. HEPARIN [Concomitant]
     Dosage: 1000 UNITS

REACTIONS (4)
  - INSOMNIA [None]
  - EXTRASYSTOLES [None]
  - BLOOD PRESSURE INCREASED [None]
  - NERVOUSNESS [None]
